FAERS Safety Report 8797497 (Version 2)
Quarter: 2012Q4

REPORT INFORMATION
  Report Type: 
  Country: US (occurrence: US)
  Receive Date: 20120920
  Receipt Date: 20121206
  Transmission Date: 20130627
  Serious: Yes (Other)
  Sender: FDA-Public Use
  Company Number: PHEH2012US018214

PATIENT
  Sex: Male

DRUGS (1)
  1. AREDIA [Suspect]

REACTIONS (14)
  - Lordosis [Unknown]
  - Gastrooesophageal reflux disease [Unknown]
  - Cardiac murmur [Unknown]
  - Prostate cancer metastatic [Unknown]
  - Pulmonary mass [Unknown]
  - Hypokinesia [Unknown]
  - Dilatation ventricular [Unknown]
  - Atrial fibrillation [Unknown]
  - Pleural effusion [Unknown]
  - Intervertebral disc degeneration [Unknown]
  - Intervertebral disc space narrowing [Unknown]
  - Skin fibrosis [Unknown]
  - Skin erosion [Unknown]
  - Actinic keratosis [Unknown]
